FAERS Safety Report 5780951-6 (Version None)
Quarter: 2008Q2

REPORT INFORMATION
  Report Type: 
  Country: None (occurrence: None)
  Receive Date: 20080620
  Receipt Date: 20080609
  Transmission Date: 20081010
  Serious: Yes (Hospitalization, Other)
  Sender: FDA-Public Use
  Company Number: BR-PFIZER INC-2008048110

PATIENT
  Age: 60 Year
  Sex: Female

DRUGS (2)
  1. PHENYTOIN [Suspect]
     Indication: PROPHYLAXIS
     Dosage: DAILY DOSE:300MG
     Route: 048
  2. THERAPEUTIC RADIOPHARMACEUTICALS [Suspect]
     Indication: METASTASES TO CENTRAL NERVOUS SYSTEM

REACTIONS (2)
  - CATHETER SEPSIS [None]
  - TOXIC EPIDERMAL NECROLYSIS [None]
